FAERS Safety Report 6636988 (Version 2)
Quarter: 2015Q4

REPORT INFORMATION
  Report Type: Report from Study
  Country: FR (occurrence: FR)
  Receive Date: 20080509
  Receipt Date: 20151224
  Transmission Date: 20160305
  Serious: Yes (Congenital Anomaly, Other)
  Sender: FDA-Public Use
  Company Number: FR-BRISTOL-MYERS SQUIBB COMPANY-14177075

PATIENT
  Sex: Female

DRUGS (4)
  1. VIRACEPT [Concomitant]
     Active Substance: NELFINAVIR MESYLATE
     Indication: PRODUCT USED FOR UNKNOWN INDICATION
     Dosage: 2500 ?G, QD
     Route: 064
     Dates: end: 20010608
  2. DIDANOSINE. [Suspect]
     Active Substance: DIDANOSINE
     Indication: PRODUCT USED FOR UNKNOWN INDICATION
     Dosage: 250 ?G, QD
     Route: 064
     Dates: end: 20010608
  3. STAVUDINE. [Suspect]
     Active Substance: STAVUDINE
     Indication: PRODUCT USED FOR UNKNOWN INDICATION
     Dosage: 60 ?G, QD
     Route: 064
     Dates: end: 20010608
  4. ZIDOVUDINE. [Concomitant]
     Active Substance: ZIDOVUDINE
     Indication: PRODUCT USED FOR UNKNOWN INDICATION
     Dosage: UNK
     Route: 064
     Dates: end: 20010608

REACTIONS (9)
  - Hypertriglyceridaemia [Unknown]
  - Lactic acidosis [Unknown]
  - Blood lactate dehydrogenase increased [Unknown]
  - Laboratory test abnormal [Unknown]
  - Arthropathy [Unknown]
  - Neutropenia [Unknown]
  - Connective tissue disorder [Unknown]
  - Congenital cystic kidney disease [Unknown]
  - Foetal exposure during pregnancy [Unknown]
